FAERS Safety Report 21162955 (Version 1)
Quarter: 2022Q3

REPORT INFORMATION
  Report Type: Spontaneous
  Country: US (occurrence: US)
  Receive Date: 20220802
  Receipt Date: 20220802
  Transmission Date: 20221027
  Serious: No
  Sender: FDA-Public Use
  Company Number: US-MYLANLABS-2022M1082253

PATIENT
  Sex: Female

DRUGS (1)
  1. XULANE [Suspect]
     Active Substance: ETHINYL ESTRADIOL\NORELGESTROMIN
     Indication: Product used for unknown indication
     Dosage: (150/35 MICROGRAM)
     Route: 062

REACTIONS (4)
  - Application site rash [Unknown]
  - Application site dryness [Unknown]
  - Application site reaction [Unknown]
  - Application site discolouration [Unknown]
